FAERS Safety Report 7210747-X (Version None)
Quarter: 2011Q1

REPORT INFORMATION
  Report Type: 
  Country: None (occurrence: None)
  Receive Date: 20110105
  Receipt Date: 20101213
  Transmission Date: 20110831
  Serious: No
  Sender: FDA-Public Use
  Company Number: US-B.I. PHARMACEUTICALS,INC./RIDGEFIELD-2010-BP-14471BP

PATIENT
  Age: 56 Year
  Sex: Male

DRUGS (7)
  1. PRADAXA [Suspect]
     Indication: ATRIAL FIBRILLATION
     Dosage: 300 MG
     Route: 048
     Dates: start: 20101110
  2. FLECAINIDE ACETATE [Concomitant]
     Indication: ATRIAL FIBRILLATION
     Dates: start: 20050101
  3. DIGOXIN [Concomitant]
     Indication: ATRIAL FIBRILLATION
     Dates: start: 20101103
  4. CARTIA XT [Concomitant]
     Indication: HYPERTENSION
     Dates: start: 20020101
  5. NIASPAN [Concomitant]
     Indication: BLOOD CHOLESTEROL INCREASED
     Dates: start: 20020101
  6. SIMVASTATIN [Concomitant]
     Indication: BLOOD CHOLESTEROL INCREASED
     Dosage: 40 MG
     Dates: start: 20020101
  7. ASPIRIN [Concomitant]
     Indication: CARDIAC DISORDER
     Dosage: 81 MG
     Dates: start: 20050101

REACTIONS (2)
  - DYSPEPSIA [None]
  - PAIN IN EXTREMITY [None]
